FAERS Safety Report 5568347-3 (Version None)
Quarter: 2007Q4

REPORT INFORMATION
  Report Type: 
  Country: None (occurrence: None)
  Receive Date: 20071220
  Receipt Date: 20071220
  Transmission Date: 20080405
  Serious: Yes (Hospitalization)
  Sender: FDA-Public Use
  Company Number: PHHO2005CA04034

PATIENT
  Age: 70 Year
  Sex: Male

DRUGS (2)
  1. ZOLEDRONIC ACID [Suspect]
     Indication: OSTEOPOROTIC FRACTURE
     Dosage: 5 MG Q 12 MONTHS
     Route: 042
     Dates: start: 20030522
  2. ZOLEDRONIC ACID [Suspect]
     Dosage: 5MG, ONCE YEARLY

REACTIONS (5)
  - CONCOMITANT DISEASE PROGRESSION [None]
  - HYPERTENSION [None]
  - KNEE ARTHROPLASTY [None]
  - OSTEOARTHRITIS [None]
  - POST PROCEDURAL COMPLICATION [None]
